FAERS Safety Report 6107617-7 (Version None)
Quarter: 2009Q1

REPORT INFORMATION
  Report Type: 
  Country: None (occurrence: None)
  Receive Date: 20090309
  Receipt Date: 20090304
  Transmission Date: 20090719
  Serious: Yes (Hospitalization)
  Sender: FDA-Public Use
  Company Number: JP-BRISTOL-MYERS SQUIBB COMPANY-14465652

PATIENT
  Age: 76 Year
  Sex: Female

DRUGS (11)
  1. TAXOL [Suspect]
     Indication: UTERINE CANCER
     Dosage: ON 19MAR08, AN HOUR LATER,RESTARTED AT 100 ML/HR.ALSO RECD ON 16APR08,14MAY08,11JUN08 + 09JUL08.
     Route: 041
     Dates: start: 20080319, end: 20080319
  2. PARAPLATIN [Suspect]
     Indication: UTERINE CANCER
     Dosage: ALSO RECD ON 16APR08,14MAY08,11JUN08 + 09JUL08.
     Route: 041
     Dates: start: 20080319, end: 20080319
  3. DEXAMETHASONE SODIUM PHOSPHATE [Concomitant]
     Route: 042
     Dates: start: 20080319, end: 20080709
  4. DIPHENHYDRAMINE HCL [Concomitant]
     Route: 048
     Dates: start: 20080319, end: 20080709
  5. FAMOTIDINE [Concomitant]
     Route: 042
     Dates: start: 20080319, end: 20080709
  6. KYTRIL [Concomitant]
     Route: 042
     Dates: start: 20080319, end: 20080710
  7. LANIRAPID [Concomitant]
     Route: 048
  8. BLOPRESS [Concomitant]
     Route: 048
  9. NORVASC [Concomitant]
     Route: 048
  10. ASPIRIN [Concomitant]
     Route: 048
  11. NEUTROGIN [Concomitant]
     Route: 058
     Dates: start: 20080718, end: 20080720

REACTIONS (7)
  - ARTHRALGIA [None]
  - INFECTION [None]
  - LYMPHADENOPATHY MEDIASTINAL [None]
  - LYMPHANGITIS [None]
  - NEUROPATHY PERIPHERAL [None]
  - PERICARDIAL EFFUSION [None]
  - PLEURAL EFFUSION [None]
